FAERS Safety Report 23480104 (Version 1)
Quarter: 2024Q1

REPORT INFORMATION
  Report Type: Spontaneous
  Country: FR (occurrence: FR)
  Receive Date: 20240205
  Receipt Date: 20240205
  Transmission Date: 20240410
  Serious: Yes (Death, Other)
  Sender: FDA-Public Use
  Company Number: FR-ARBOR PHARMACEUTICALS, LLC-FR-2024AZR000089

PATIENT
  Age: 92 Year
  Sex: Male

DRUGS (5)
  1. TRIPTODUR [Suspect]
     Active Substance: TRIPTORELIN
     Indication: Product used for unknown indication
     Dosage: ONE INJECTION EVERY 6 MONTHS (22.5 MG,6 M)
     Route: 030
  2. TRIPTODUR [Suspect]
     Active Substance: TRIPTORELIN
     Dosage: ONE INJECTION EVERY 6 MONTHS (22.5 MG,6 M)
     Route: 030
     Dates: start: 2002
  3. TRIPTODUR [Suspect]
     Active Substance: TRIPTORELIN
     Dosage: ONE INJECTION EVERY 6 MONTHS (22.5 MG,6 M)
     Route: 030
     Dates: start: 20240106
  4. TRIPTODUR [Suspect]
     Active Substance: TRIPTORELIN
  5. TRIPTODUR [Suspect]
     Active Substance: TRIPTORELIN

REACTIONS (23)
  - Death [Fatal]
  - Dyspnoea [Unknown]
  - Muscular weakness [Unknown]
  - Back pain [Unknown]
  - Vision blurred [Unknown]
  - Agitation [Unknown]
  - Confusional state [Unknown]
  - Insomnia [Unknown]
  - Nausea [Unknown]
  - Decreased appetite [Unknown]
  - Tremor [Unknown]
  - Dizziness [Unknown]
  - Hyperhidrosis [Unknown]
  - Fatigue [Unknown]
  - Dry mouth [Unknown]
  - Lip swelling [Unknown]
  - Tremor [Recovered/Resolved]
  - Dizziness [Recovered/Resolved]
  - Hyperhidrosis [Recovered/Resolved]
  - Fatigue [Recovered/Resolved]
  - Dry mouth [Recovered/Resolved]
  - Lip swelling [Recovered/Resolved]
  - General physical health deterioration [Unknown]

NARRATIVE: CASE EVENT DATE: 20230101
